FAERS Safety Report 8963809 (Version 2)
Quarter: 2012Q4

REPORT INFORMATION
  Report Type: 
  Country: AR (occurrence: AR)
  Receive Date: 20121214
  Receipt Date: 20121219
  Transmission Date: 20130627
  Serious: Yes (Other)
  Sender: FDA-Public Use
  Company Number: AR-AMGEN-ARGSP2012080318

PATIENT
  Age: 65 Year
  Sex: Male

DRUGS (3)
  1. ENBREL [Suspect]
     Indication: PSORIASIS
     Dosage: 50 mg, every 15 days
     Route: 058
     Dates: start: 20100202
  2. ATORVASTATIN [Concomitant]
     Dosage: UNK
  3. ASPIRINETAS [Concomitant]
     Dosage: UNK

REACTIONS (1)
  - Laryngeal cancer [Recovered/Resolved]
